FAERS Safety Report 6803328-0 (Version None)
Quarter: 2010Q2

REPORT INFORMATION
  Report Type: 
  Country: None (occurrence: None)
  Receive Date: 20100628
  Receipt Date: 20100621
  Transmission Date: 20101027
  Serious: Yes (Hospitalization)
  Sender: FDA-Public Use
  Company Number: FR-ROCHE-693350

PATIENT
  Sex: Female
  Weight: 48 kg

DRUGS (1)
  1. ROACTEMRA [Suspect]
     Indication: RHEUMATOID ARTHRITIS
     Dosage: OTHER INDICATION: LUPUS;6 CYCLES GIVEN
     Route: 042
     Dates: start: 20090301, end: 20090801

REACTIONS (1)
  - EPILEPSY [None]
